FAERS Safety Report 22220662 (Version 1)
Quarter: 2023Q2

REPORT INFORMATION
  Report Type: Spontaneous
  Country: GB (occurrence: GB)
  Receive Date: 20230417
  Receipt Date: 20230417
  Transmission Date: 20230722
  Serious: Yes (Other)
  Sender: FDA-Public Use
  Company Number: None

PATIENT
  Age: 84 Year
  Sex: Female
  Weight: 67 kg

DRUGS (19)
  1. RYBELSUS [Suspect]
     Active Substance: SEMAGLUTIDE
     Indication: Product used for unknown indication
     Dosage: 1 DF, QD (ON ALTERNATE DAYS, MORNING (EMPTY STOMACH). ALTERNATE BETWEEN 3MG AND 7MG TABLET.)
     Route: 048
     Dates: start: 20230206
  2. ACIDEX ADVANCE [Concomitant]
     Indication: Dyspepsia
     Dosage: 10ML TO 20ML FOUR TIMES A DAY PRN (REPLACES GAV...
     Dates: start: 20221116
  3. ALLOPURINOL [Concomitant]
     Active Substance: ALLOPURINOL
     Indication: Product used for unknown indication
     Dosage: 1 DF, QD
     Dates: start: 20221116
  4. BRINZOLAMIDE [Concomitant]
     Active Substance: BRINZOLAMIDE
     Indication: Product used for unknown indication
     Dosage: 2 GTT (DROPS), BID (PUT ONE DROP IN BOTH)
     Dates: start: 20221116, end: 20230303
  5. DICLOFENAC DIETHYLAMINE [Concomitant]
     Active Substance: DICLOFENAC DIETHYLAMINE
     Indication: Product used for unknown indication
     Dosage: APPLY THREE OR FOUR TIMES A DAY
     Dates: start: 20221116
  6. DIORALYTE [CITRIC ACID;GLUCOSE;POTASSIUM CHLORIDE;SODIUM BICARBONATE;S [Concomitant]
     Indication: Product used for unknown indication
     Dosage: 1 TAB
     Dates: start: 20221219, end: 20221226
  7. DORZOLAMIDE [Concomitant]
     Active Substance: DORZOLAMIDE
     Indication: Product used for unknown indication
     Dosage: 2 GTT (DROPS), BID (PUT ONE DROP IN BOTH EYES)
     Dates: start: 20230303
  8. DOXYCYCLINE [Concomitant]
     Active Substance: DOXYCYCLINE
     Indication: Product used for unknown indication
     Dosage: TWO NOW THEN ONE DAILY
     Dates: start: 20221219, end: 20221226
  9. BECLOMETHASONE\FORMOTEROL [Concomitant]
     Active Substance: BECLOMETHASONE\FORMOTEROL
     Indication: Product used for unknown indication
     Dosage: 2 DF, BID
     Route: 048
     Dates: start: 20221116
  10. GLICLAZIDE [Concomitant]
     Active Substance: GLICLAZIDE
     Indication: Product used for unknown indication
     Dosage: 1 DF, QD (WITH BREAKFAST)
     Dates: start: 20230303
  11. HYALURONATE SODIUM [Concomitant]
     Active Substance: HYALURONATE SODIUM
     Indication: Product used for unknown indication
     Dosage: 2 GTT (DROPS) (ONE DROP IN BOTH EYES)
     Dates: start: 20221116
  12. LATANOPROST [Concomitant]
     Active Substance: LATANOPROST
     Indication: Product used for unknown indication
     Dosage: 2 GTT (DROPS), QD (ONE DROP TO BE USED AT NIGHT IN BOTH EYES)
     Dates: start: 20221116
  13. LINAGLIPTIN [Concomitant]
     Active Substance: LINAGLIPTIN
     Indication: Product used for unknown indication
     Dosage: 1 DF, QD
     Route: 048
     Dates: start: 20230303
  14. LOPERAMIDE [Concomitant]
     Active Substance: LOPERAMIDE
     Indication: Product used for unknown indication
     Dosage: 2 IMMEDIATELY, ONE WHEN REQUIRED
     Dates: start: 20221219, end: 20221226
  15. ACETAMINOPHEN [Concomitant]
     Active Substance: ACETAMINOPHEN
     Indication: Product used for unknown indication
     Dosage: ONE OR TWO TO BE TAKEN EVERY 4-6 HOURS UP TO FO...
     Dates: start: 20221116
  16. PREDNISOLONE [Concomitant]
     Active Substance: PREDNISOLONE
     Indication: Product used for unknown indication
     Dosage: 6 DF, QD (WITH FOOD FOR 5 DAYS)
     Route: 048
     Dates: start: 20221219, end: 20221224
  17. QUININE [Concomitant]
     Active Substance: QUININE
     Indication: Product used for unknown indication
     Dosage: 1 DF, QD (AT NIGHT)
     Dates: start: 20221116
  18. RAMIPRIL [Concomitant]
     Active Substance: RAMIPRIL
     Indication: Product used for unknown indication
     Dosage: 1 DF, QD
     Route: 048
     Dates: start: 20221116
  19. ALBUTEROL SULFATE [Concomitant]
     Active Substance: ALBUTEROL SULFATE
     Indication: Product used for unknown indication
     Dosage: ONE OR TWO PUFFS TO BE INHALED FOUR TIMES A DAY...
     Dates: start: 20221116

REACTIONS (3)
  - Ageusia [Recovered/Resolved with Sequelae]
  - Diarrhoea [Recovered/Resolved with Sequelae]
  - Inappropriate schedule of product administration [Unknown]

NARRATIVE: CASE EVENT DATE: 20230206
